FAERS Safety Report 9168169 (Version 2)
Quarter: 2013Q2

REPORT INFORMATION
  Report Type: Spontaneous
  Country: FR (occurrence: FR)
  Receive Date: 20130318
  Receipt Date: 20130403
  Transmission Date: 20140414
  Serious: Yes (Death, Hospitalization)
  Sender: FDA-Public Use
  Company Number: FR-B.I. PHARMACEUTICALS,INC./RIDGEFIELD-2013-FF-00743FF

PATIENT
  Age: 84 Year
  Sex: Male

DRUGS (2)
  1. PRADAXA [Suspect]
     Indication: ATRIAL FIBRILLATION
     Dosage: 220 MG
     Route: 048
     Dates: end: 20130207
  2. PRADAXA [Suspect]
     Indication: ARRHYTHMIA

REACTIONS (7)
  - Accidental death [Fatal]
  - Central nervous system haemorrhage [Fatal]
  - Coma [Fatal]
  - Meningorrhagia [Fatal]
  - Craniocerebral injury [Unknown]
  - Skull fracture [Unknown]
  - Fall [Unknown]
